FAERS Safety Report 7772722-6 (Version None)
Quarter: 2011Q3

REPORT INFORMATION
  Report Type: 
  Country: None (occurrence: None)
  Receive Date: 20110922
  Receipt Date: 20110622
  Transmission Date: 20111222
  Serious: No
  Sender: FDA-Public Use
  Company Number: US-ASTRAZENECA-2011SE38054

PATIENT
  Sex: Male

DRUGS (16)
  1. LITHIUM [Concomitant]
     Indication: SCHIZOPHRENIA
  2. VALIUM [Concomitant]
     Indication: BIPOLAR DISORDER
  3. TOPAMAX [Concomitant]
     Indication: DEPRESSION
  4. TOPAMAX [Concomitant]
     Indication: BIPOLAR DISORDER
  5. SEROQUEL XR [Suspect]
     Indication: PARANOIA
     Route: 048
  6. LITHIUM [Concomitant]
     Indication: BIPOLAR DISORDER
  7. VALIUM [Concomitant]
     Indication: DEPRESSION
  8. PROPRANOLOL [Concomitant]
     Indication: BIPOLAR DISORDER
  9. VALIUM [Concomitant]
     Indication: SCHIZOPHRENIA
  10. LITHIUM [Concomitant]
     Indication: DEPRESSION
  11. SEROQUEL XR [Suspect]
     Indication: SCHIZOPHRENIA
     Route: 048
  12. PROPRANOLOL [Concomitant]
     Indication: DEPRESSION
  13. TOPAMAX [Concomitant]
     Indication: SCHIZOPHRENIA
  14. SEROQUEL XR [Suspect]
     Indication: BIPOLAR DISORDER
     Route: 048
  15. PROPRANOLOL [Concomitant]
     Indication: SCHIZOPHRENIA
  16. TESTOSTERON INJECTION [Concomitant]

REACTIONS (2)
  - DRUG DOSE OMISSION [None]
  - PARANOIA [None]
